FAERS Safety Report 5082773-0 (Version None)
Quarter: 2006Q3

REPORT INFORMATION
  Report Type: 
  Country: None (occurrence: None)
  Receive Date: 20060816
  Receipt Date: 20060816
  Transmission Date: 20061208
  Serious: Yes (Hospitalization)
  Sender: FDA-Public Use
  Company Number: None

PATIENT
  Age: 55 Year
  Sex: Female
  Weight: 95.2554 kg

DRUGS (15)
  1. AMBIEN CR [Suspect]
     Indication: SOMNOLENCE
     Dosage: 12.5 G QHS
  2. DIAZEPAM [Suspect]
     Indication: ANXIETY
     Dosage: 5 MG PO BID
     Route: 048
  3. GABAPENTIN [Concomitant]
  4. PROMETHAZINE [Concomitant]
  5. DIAZEPAM [Concomitant]
  6. LASIX [Concomitant]
  7. COUMADIN [Concomitant]
  8. FIORICET [Concomitant]
  9. DARVOCET [Concomitant]
  10. LUNESTA [Concomitant]
  11. POTASSIUM CHLORIDE [Concomitant]
  12. LEVAQUIN [Concomitant]
  13. AMBIEN [Concomitant]
  14. EFFEXOR [Concomitant]
  15. XANAX [Concomitant]

REACTIONS (6)
  - CONFUSIONAL STATE [None]
  - COORDINATION ABNORMAL [None]
  - FALL [None]
  - HYPERSOMNIA [None]
  - MEDICATION ERROR [None]
  - TREATMENT NONCOMPLIANCE [None]
